FAERS Safety Report 8902614 (Version 3)
Quarter: 2013Q1

REPORT INFORMATION
  Report Type: Spontaneous
  Country: US (occurrence: US)
  Receive Date: 20121112
  Receipt Date: 20130102
  Transmission Date: 20140127
  Serious: Yes (Other)
  Sender: FDA-Public Use
  Company Number: US-BAYER-2012-117028

PATIENT
  Age: 28 Year
  Sex: Female
  Weight: 66.21 kg

DRUGS (2)
  1. MIRENA [Suspect]
     Indication: CONTRACEPTION
     Dosage: 20 MCG/24HR, CONT
     Route: 015
     Dates: start: 20120517, end: 20121109
  2. MIRENA [Suspect]
     Indication: MENORRHAGIA

REACTIONS (5)
  - Device dislocation [Recovered/Resolved]
  - Genital haemorrhage [Recovered/Resolved]
  - Menstruation irregular [None]
  - Abdominal pain [Recovered/Resolved]
  - Device difficult to use [Recovered/Resolved]
